FAERS Safety Report 7313567-0 (Version None)
Quarter: 2011Q1

REPORT INFORMATION
  Report Type: 
  Country: None (occurrence: None)
  Receive Date: 20110225
  Receipt Date: 20110216
  Transmission Date: 20110831
  Serious: Yes (Other)
  Sender: FDA-Public Use
  Company Number: US-TEVA-267503USA

PATIENT
  Sex: Male

DRUGS (2)
  1. AMOXICILLIN [Concomitant]
     Indication: SINUSITIS
     Dates: start: 20110201
  2. CLARAVIS [Suspect]
     Indication: ACNE
     Route: 048
     Dates: start: 20091214, end: 20110216

REACTIONS (5)
  - FEELING ABNORMAL [None]
  - DECREASED ACTIVITY [None]
  - BRONCHITIS [None]
  - IRRITABILITY [None]
  - SUICIDAL IDEATION [None]
